FAERS Safety Report 14109341 (Version 1)
Quarter: 2017Q4

REPORT INFORMATION
  Report Type: Spontaneous
  Country: JP (occurrence: JP)
  Receive Date: 20171019
  Receipt Date: 20171019
  Transmission Date: 20180321
  Serious: Yes (Death)
  Sender: FDA-Public Use
  Company Number: PHJP2017JP031231

PATIENT
  Sex: Male

DRUGS (4)
  1. REVOLADE TAB [Suspect]
     Active Substance: ELTROMBOPAG
     Dosage: 50 MG, DAIILY
     Route: 048
  2. REVOLADE TAB [Suspect]
     Active Substance: ELTROMBOPAG
     Dosage: 75 MG, DAILY
     Route: 048
  3. REVOLADE TAB [Suspect]
     Active Substance: ELTROMBOPAG
     Dosage: 100 MG, DAILY
     Route: 048
  4. REVOLADE TAB [Suspect]
     Active Substance: ELTROMBOPAG
     Indication: APLASTIC ANAEMIA
     Dosage: 25 MG, DAILY
     Route: 048
     Dates: start: 201709

REACTIONS (2)
  - Concomitant disease aggravated [Fatal]
  - Sepsis [Fatal]

NARRATIVE: CASE EVENT DATE: 20171007
